FAERS Safety Report 20739020 (Version 1)
Quarter: 2022Q2

REPORT INFORMATION
  Report Type: Spontaneous
  Country: CN (occurrence: None)
  Receive Date: 20220422
  Receipt Date: 20220422
  Transmission Date: 20220721
  Serious: Yes (Other)
  Sender: FDA-Public Use
  Company Number: 2022A157201

PATIENT
  Age: 29384 Day
  Sex: Male
  Weight: 59.4 kg

DRUGS (5)
  1. DURVALUMAB [Suspect]
     Active Substance: DURVALUMAB
     Indication: Poisoning
     Route: 042
     Dates: start: 20220318, end: 20220318
  2. DURVALUMAB [Suspect]
     Active Substance: DURVALUMAB
     Indication: Immunochemotherapy
     Route: 042
     Dates: start: 20220318, end: 20220318
  3. GEMCITABINE HYDROCHLORIDE [Suspect]
     Active Substance: GEMCITABINE HYDROCHLORIDE
     Indication: Poisoning
     Route: 042
     Dates: start: 20220318, end: 20220318
  4. GEMCITABINE HYDROCHLORIDE [Suspect]
     Active Substance: GEMCITABINE HYDROCHLORIDE
     Indication: Immunochemotherapy
     Route: 042
     Dates: start: 20220318, end: 20220318
  5. SODIUM CHLORIDE [Concomitant]
     Active Substance: SODIUM CHLORIDE
     Indication: Chemical poisoning
     Route: 042
     Dates: start: 20220318, end: 20220318

REACTIONS (2)
  - Neutrophil count decreased [Recovering/Resolving]
  - White blood cell count decreased [Recovering/Resolving]

NARRATIVE: CASE EVENT DATE: 20220325
